FAERS Safety Report 8601352-9 (Version None)
Quarter: 2012Q3

REPORT INFORMATION
  Report Type: 
  Country: None (occurrence: None)
  Receive Date: 20120817
  Receipt Date: 20120717
  Transmission Date: 20120928
  Serious: Yes (Other)
  Sender: FDA-Public Use
  Company Number: FR-JNJFOC-20120803984

PATIENT
  Age: 52 Year
  Sex: Female

DRUGS (4)
  1. TRAMADOL HYDROCHLORIDE [Suspect]
     Route: 048
  2. TRAMADOL HYDROCHLORIDE [Suspect]
     Route: 065
  3. BUPRENORPHINE [Concomitant]
     Indication: PRODUCT USED FOR UNKNOWN INDICATION
     Route: 062
  4. TRAMADOL HYDROCHLORIDE [Suspect]
     Indication: PAIN
     Route: 048

REACTIONS (3)
  - CROSS SENSITIVITY REACTION [None]
  - INFLUENZA LIKE ILLNESS [None]
  - DERMATITIS CONTACT [None]
